FAERS Safety Report 8220812-6 (Version None)
Quarter: 2012Q1

REPORT INFORMATION
  Report Type: 
  Country: None (occurrence: None)
  Receive Date: 20120307
  Receipt Date: 20100106
  Transmission Date: 20120608
  Serious: No
  Sender: FDA-Public Use
  Company Number: PHHY2010US01108

PATIENT
  Age: 56 Year
  Sex: Male

DRUGS (1)
  1. AFINITOR [Suspect]
     Indication: RENAL CANCER
     Dosage: 10 MG, QD, ORAL
     Route: 048
     Dates: start: 20090301, end: 20091201

REACTIONS (1)
  - DRUG INEFFECTIVE [None]
